FAERS Safety Report 17673234 (Version 1)
Quarter: 2020Q2

REPORT INFORMATION
  Report Type: Spontaneous
  Country: US (occurrence: US)
  Receive Date: 20200415
  Receipt Date: 20200415
  Transmission Date: 20200713
  Serious: No
  Sender: FDA-Public Use
  Company Number: US-STRONGBRIDGE BIOPHARMA-2019-STR-000319

PATIENT
  Age: 49 Year
  Sex: Female

DRUGS (1)
  1. KEVEYIS [Suspect]
     Active Substance: DICHLORPHENAMIDE
     Indication: FAMILIAL PERIODIC PARALYSIS
     Dosage: 50 MG, BID
     Route: 048

REACTIONS (4)
  - Disease recurrence [Unknown]
  - Disease recurrence [Not Recovered/Not Resolved]
  - Migraine [Unknown]
  - Stress [None]

NARRATIVE: CASE EVENT DATE: 20191201
